FAERS Safety Report 14526140 (Version 11)
Quarter: 2021Q3

REPORT INFORMATION
  Report Type: Spontaneous
  Country: DE (occurrence: DE)
  Receive Date: 20180213
  Receipt Date: 20210827
  Transmission Date: 20211014
  Serious: Yes (Death, Life-Threatening, Hospitalization, Other)
  Sender: FDA-Public Use
  Company Number: DE-BIOGEN-2018BI00520964

PATIENT
  Age: 38 Year
  Sex: Female

DRUGS (11)
  1. FAMPYRA [Suspect]
     Active Substance: DALFAMPRIDINE
     Indication: GAIT DISTURBANCE
     Route: 050
  2. ZINBRYTA [Suspect]
     Active Substance: DACLIZUMAB
     Route: 065
     Dates: end: 20171114
  3. TARDYFERON [Concomitant]
     Active Substance: FERROUS SULFATE
     Indication: PRODUCT USED FOR UNKNOWN INDICATION
     Route: 065
  4. TROSPIUM [Concomitant]
     Active Substance: TROSPIUM
     Indication: PRODUCT USED FOR UNKNOWN INDICATION
     Route: 065
  5. ZINBRYTA [Suspect]
     Active Substance: DACLIZUMAB
     Route: 065
     Dates: start: 20170509
  6. ZINBRYTA [Suspect]
     Active Substance: DACLIZUMAB
     Route: 065
  7. ZINBRYTA [Suspect]
     Active Substance: DACLIZUMAB
     Indication: RELAPSING-REMITTING MULTIPLE SCLEROSIS
     Route: 050
     Dates: start: 201702
  8. ZINBRYTA [Suspect]
     Active Substance: DACLIZUMAB
     Route: 050
     Dates: end: 20171128
  9. DEKRISTOL [Concomitant]
     Active Substance: CHOLECALCIFEROL
     Indication: VITAMIN D DEFICIENCY
     Route: 065
  10. FOLIC ACID. [Concomitant]
     Active Substance: FOLIC ACID
     Indication: PRODUCT USED FOR UNKNOWN INDICATION
     Route: 050
  11. TARDYFERON [Concomitant]
     Active Substance: FERROUS SULFATE
     Indication: PRODUCT USED FOR UNKNOWN INDICATION
     Route: 065

REACTIONS (21)
  - Status epilepticus [Recovered/Resolved with Sequelae]
  - Chronic sinusitis [Unknown]
  - Decreased appetite [Unknown]
  - Erythema [Unknown]
  - Brain injury [Fatal]
  - Central nervous system lymphoma [Unknown]
  - Pyrexia [Recovered/Resolved with Sequelae]
  - Multiple sclerosis [Recovered/Resolved with Sequelae]
  - Leukocytosis [Recovered/Resolved with Sequelae]
  - Eosinophilia [Recovered/Resolved with Sequelae]
  - Encephalitis [Unknown]
  - Respiratory failure [Unknown]
  - Rash [Unknown]
  - Immune-mediated encephalopathy [Unknown]
  - Sinus tachycardia [Unknown]
  - Pneumonia aspiration [Not Recovered/Not Resolved]
  - Swelling face [Unknown]
  - Central nervous system vasculitis [Unknown]
  - Renal failure [Unknown]
  - Sepsis [Unknown]
  - Swelling [Unknown]

NARRATIVE: CASE EVENT DATE: 201710
